FAERS Safety Report 6327086-1 (Version None)
Quarter: 2009Q3

REPORT INFORMATION
  Report Type: 
  Country: None (occurrence: None)
  Receive Date: 20090825
  Receipt Date: 20090819
  Transmission Date: 20100115
  Serious: Yes (Hospitalization)
  Sender: FDA-Public Use
  Company Number: JP-ROCHE-651204

PATIENT
  Sex: Male

DRUGS (3)
  1. CAPECITABINE [Suspect]
     Indication: GASTRIC CANCER
     Dosage: FREQUENCY: BID. D1-14Q3W, TWICE DAILY FOR 14 DAYS EVERY 3 WEEKS
     Route: 048
     Dates: start: 20080924
  2. BLINDED BEVACIZUMAB [Suspect]
     Indication: GASTRIC CANCER
     Dosage: FREQUENCY: D1Q3W - EVERY 3 WEEKS, ON DAY 1 OF CYCLE 1, FORM: INFUSION
     Route: 042
     Dates: start: 20080924
  3. CISPLATIN [Suspect]
     Indication: GASTRIC CANCER
     Dosage: LAST DOSE PRIOR TO SAE: 01 OCTOBER 2008, FORM: INFUSION. FREQUENCY: D1Q3W
     Route: 042
     Dates: start: 20080924

REACTIONS (2)
  - DEHYDRATION [None]
  - INTERSTITIAL LUNG DISEASE [None]
